FAERS Safety Report 25396373 (Version 7)
Quarter: 2025Q4

REPORT INFORMATION
  Report Type: Report from Study
  Country: CA (occurrence: None)
  Receive Date: 20250604
  Receipt Date: 20251205
  Transmission Date: 20260118
  Serious: Yes (Other)
  Sender: UCB
  Company Number: CA-UCBSA-2025032396

PATIENT
  Age: 59 Year

DRUGS (4)
  1. BIMEKIZUMAB [Suspect]
     Active Substance: BIMEKIZUMAB
     Indication: Psoriatic arthropathy
     Dosage: 160 MILLIGRAM, EV 4 WEEKS
  2. LEFLUNOMIDE [Concomitant]
     Active Substance: LEFLUNOMIDE
     Indication: Product used for unknown indication
  3. PREDNISONE [Concomitant]
     Active Substance: PREDNISONE
     Indication: Product used for unknown indication
  4. VITAMINS [Concomitant]
     Active Substance: VITAMINS
     Indication: Product used for unknown indication
     Dosage: UNK

REACTIONS (10)
  - Psoriatic arthropathy [Unknown]
  - Oropharyngeal pain [Recovered/Resolved]
  - Fluid intake reduced [Not Recovered/Not Resolved]
  - Fungal infection [Not Recovered/Not Resolved]
  - Wound infection [Not Recovered/Not Resolved]
  - Diarrhoea [Not Recovered/Not Resolved]
  - Abdominal pain [Not Recovered/Not Resolved]
  - Urinary tract infection [Not Recovered/Not Resolved]
  - Inappropriate schedule of product administration [Unknown]
  - Treatment failure [Unknown]
